FAERS Safety Report 17926830 (Version 1)
Quarter: 2020Q2

REPORT INFORMATION
  Report Type: Other
  Country: US (occurrence: US)
  Receive Date: 20200623
  Receipt Date: 20200623
  Transmission Date: 20200714
  Serious: No
  Sender: FDA-Public Use
  Company Number: US-BIOVITRUM-2019US1258

PATIENT
  Sex: Female

DRUGS (4)
  1. KINERET [Suspect]
     Active Substance: ANAKINRA
     Route: 058
     Dates: start: 20190429
  2. LABETALOL [Concomitant]
     Active Substance: LABETALOL\LABETALOL HYDROCHLORIDE
  3. NORVASC [Concomitant]
     Active Substance: AMLODIPINE BESYLATE
  4. COLCHICINE. [Concomitant]
     Active Substance: COLCHICINE

REACTIONS (2)
  - Erythema [Unknown]
  - Swelling [Unknown]
